FAERS Safety Report 5128549-7 (Version None)
Quarter: 2006Q4

REPORT INFORMATION
  Report Type: 
  Country: None (occurrence: None)
  Receive Date: 20061011
  Receipt Date: 20061002
  Transmission Date: 20070319
  Serious: Yes (Other)
  Sender: FDA-Public Use
  Company Number: 2006120516

PATIENT
  Age: 61 Year
  Sex: Female
  Weight: 69.8539 kg

DRUGS (6)
  1. GENOTROPIN [Suspect]
     Indication: GROWTH HORMONE DEFICIENCY
     Dosage: 0.2 MG (0.2 MG, 1 IN 1 D), SUBCUTANEOUS
     Route: 058
     Dates: start: 20060929
  2. LOPRESSOR [Concomitant]
  3. COZAAR [Concomitant]
  4. PRAVACHOL [Concomitant]
  5. ZETIA [Concomitant]
  6. FOSAMAX [Concomitant]

REACTIONS (2)
  - BLOOD PRESSURE INCREASED [None]
  - FEELING ABNORMAL [None]
